FAERS Safety Report 5078729-4 (Version None)
Quarter: 2006Q3

REPORT INFORMATION
  Report Type: 
  Country: None (occurrence: None)
  Receive Date: 20060720
  Receipt Date: 20060619
  Transmission Date: 20061208
  Serious: Yes (Other)
  Sender: FDA-Public Use
  Company Number: HQWYE330621JUN06

PATIENT
  Sex: Female

DRUGS (1)
  1. ADVIL PM [Suspect]
     Indication: INSOMNIA
     Dosage: ONE CAPLET ONE TIME, ORAL
     Route: 048
     Dates: start: 20060618, end: 20060618

REACTIONS (1)
  - DRUG INEFFECTIVE [None]
